FAERS Safety Report 7097037-3 (Version None)
Quarter: 2010Q4

REPORT INFORMATION
  Report Type: 
  Country: None (occurrence: None)
  Receive Date: 20101025
  Receipt Date: 20101008
  Transmission Date: 20110411
  Serious: Yes (Other)
  Sender: FDA-Public Use
  Company Number: 20101008CINRY1646

PATIENT
  Age: 40 Year
  Sex: Female

DRUGS (5)
  1. CINRYZE [Suspect]
     Indication: HEREDITARY ANGIOEDEMA
     Dosage: (1000 UNIT,1 IN 4 D),INTRAVENOUS
     Route: 042
     Dates: start: 20100406
  2. CINRYZE [Suspect]
     Indication: PROPHYLAXIS
     Dosage: (1000 UNIT,1 IN 4 D),INTRAVENOUS
     Route: 042
     Dates: start: 20100406
  3. POTASSIUM (POTASSIUM) [Concomitant]
  4. MAGNESIUM (MAGNESIUM) [Concomitant]
  5. ALLEGRA [Concomitant]

REACTIONS (9)
  - BLOOD MAGNESIUM DECREASED [None]
  - CONDITION AGGRAVATED [None]
  - DIARRHOEA [None]
  - HEREDITARY ANGIOEDEMA [None]
  - HYPOKALAEMIA [None]
  - NEPHROPATHY [None]
  - STRESS [None]
  - TREATMENT NONCOMPLIANCE [None]
  - WEIGHT DECREASED [None]
